FAERS Safety Report 11867251 (Version 1)
Quarter: 2015Q4

REPORT INFORMATION
  Report Type: Spontaneous
  Country: PE (occurrence: PE)
  Receive Date: 20151224
  Receipt Date: 20151224
  Transmission Date: 20160305
  Serious: Yes (Death, Other)
  Sender: FDA-Public Use
  Company Number: PE-SA-2015SA218246

PATIENT
  Age: 36 Year
  Sex: Male

DRUGS (3)
  1. THYMOGLOBULINE [Suspect]
     Active Substance: LAPINE T-LYMPHOCYTE IMMUNE GLOBULIN
     Indication: APLASTIC ANAEMIA
     Route: 042
     Dates: start: 20150902, end: 20150906
  2. METHYLPREDNISOLONE. [Concomitant]
     Active Substance: METHYLPREDNISOLONE
     Route: 042
     Dates: start: 20150902, end: 20150906
  3. CYCLOSPORIN [Concomitant]
     Active Substance: CYCLOSPORINE
     Dosage: INDICATED FOR 24 DAYS
     Route: 042
     Dates: start: 20150902

REACTIONS (2)
  - Upper gastrointestinal haemorrhage [Fatal]
  - Pneumonia [Unknown]

NARRATIVE: CASE EVENT DATE: 20150907
